FAERS Safety Report 16016952 (Version 1)
Quarter: 2019Q1

REPORT INFORMATION
  Report Type: Report from Study
  Country: BE (occurrence: BE)
  Receive Date: 20190228
  Receipt Date: 20190228
  Transmission Date: 20190418
  Serious: Yes (Other)
  Sender: FDA-Public Use
  Company Number: BE-TEVA-2019-BE-1019054

PATIENT

DRUGS (1)
  1. COPAXONE [Suspect]
     Active Substance: GLATIRAMER ACETATE
     Route: 065

REACTIONS (4)
  - Injection site necrosis [Recovering/Resolving]
  - Injection site pain [Recovering/Resolving]
  - Injection site discolouration [Recovering/Resolving]
  - Injection site scar [Unknown]
